FAERS Safety Report 25106060 (Version 1)
Quarter: 2025Q1

REPORT INFORMATION
  Report Type: Spontaneous
  Country: CN (occurrence: CN)
  Receive Date: 20250321
  Receipt Date: 20250321
  Transmission Date: 20250409
  Serious: Yes (Other)
  Sender: PFIZER
  Company Number: CN-PFIZER INC-PV202500033193

PATIENT
  Age: 27 Year
  Sex: Female
  Weight: 46 kg

DRUGS (1)
  1. HEMABATE [Suspect]
     Active Substance: CARBOPROST TROMETHAMINE
     Indication: Uterine hypotonus
     Dosage: 1 ML, 1X/DAY
     Route: 030
     Dates: start: 20250226, end: 20250226

REACTIONS (2)
  - Cough [Recovering/Resolving]
  - Tracheal disorder [Unknown]

NARRATIVE: CASE EVENT DATE: 20250226
